FAERS Safety Report 4594856-X (Version None)
Quarter: 2005Q1

REPORT INFORMATION
  Report Type: 
  Country: None (occurrence: None)
  Receive Date: 20050301
  Receipt Date: 20050221
  Transmission Date: 20050727
  Serious: Yes (Hospitalization)
  Sender: FDA-Public Use
  Company Number: GB-ABBOTT-05P-167-0291719-00

PATIENT
  Age: 85 Year
  Sex: Female
  Weight: 50.8 kg

DRUGS (6)
  1. FERROGRAD [Suspect]
     Indication: ANAEMIA
     Route: 048
     Dates: start: 20050111, end: 20050111
  2. ASPIRIN [Concomitant]
     Indication: CARDIAC DISORDER
     Dates: end: 20050102
  3. LISINOPRIL [Concomitant]
     Indication: CARDIAC DISORDER
     Route: 048
  4. ESOMEPRAZOLE [Concomitant]
     Indication: GASTRITIS
     Route: 048
     Dates: start: 20041213
  5. DIHYDROCODEINE [Concomitant]
     Indication: PAIN
     Route: 048
     Dates: start: 20050108, end: 20050116
  6. TRAMADOL HCL [Concomitant]
     Indication: PAIN
     Route: 048
     Dates: start: 20041231, end: 20050117

REACTIONS (7)
  - FEELING ABNORMAL [None]
  - HYPOTENSION [None]
  - MALAISE [None]
  - NAUSEA [None]
  - RASH ERYTHEMATOUS [None]
  - TACHYCARDIA [None]
  - VOMITING [None]
